FAERS Safety Report 15120510 (Version 2)
Quarter: 2018Q3

REPORT INFORMATION
  Report Type: Spontaneous
  Country: SE (occurrence: SE)
  Receive Date: 20180709
  Receipt Date: 20180801
  Transmission Date: 20181010
  Serious: Yes (Death, Hospitalization, Other)
  Sender: FDA-Public Use
  Company Number: PHHY2017SE138600

PATIENT
  Age: 61 Year
  Sex: Male

DRUGS (22)
  1. VINCRISTINE [Suspect]
     Active Substance: VINCRISTINE
     Indication: B-CELL LYMPHOMA
  2. CYCLOPHOSPHAMIDE. [Suspect]
     Active Substance: CYCLOPHOSPHAMIDE
     Indication: B-CELL LYMPHOMA
  3. CYCLOPHOSPHAMIDE. [Suspect]
     Active Substance: CYCLOPHOSPHAMIDE
     Indication: B-CELL LYMPHOMA
  4. METHOTREXATE. [Suspect]
     Active Substance: METHOTREXATE
     Dosage: UNK
     Route: 037
  5. MABTHERA [Suspect]
     Active Substance: RITUXIMAB
     Dosage: 700 MG, UNK
     Route: 042
  6. MABTHERA [Suspect]
     Active Substance: RITUXIMAB
     Indication: B-CELL LYMPHOMA
  7. PREDNISONE. [Suspect]
     Active Substance: PREDNISONE
     Indication: B-CELL LYMPHOMA
     Dosage: DOSAGE FORM: UNSPECIFIED
     Route: 065
  8. ZEFFIX [Concomitant]
     Active Substance: LAMIVUDINE
     Indication: HEPATITIS B
  9. VINCRISTINE [Suspect]
     Active Substance: VINCRISTINE
     Dosage: 1 UG/L, UNK
     Route: 042
  10. PREDNISONE. [Suspect]
     Active Substance: PREDNISONE
     Route: 065
  11. ONCOVIN [Suspect]
     Active Substance: VINCRISTINE SULFATE
     Indication: LYMPHOMA
     Route: 065
  12. PREDNISONE. [Suspect]
     Active Substance: PREDNISONE
     Indication: LYMPHOMA
     Dosage: DOSAGE FORM: UNSPECIFIED
     Route: 065
  13. LAMIVUDINE. [Concomitant]
     Active Substance: LAMIVUDINE
     Indication: HEPATITIS B
     Route: 065
  14. DOXORUBICIN [Suspect]
     Active Substance: DOXORUBICIN
     Indication: LYMPHOMA
     Dosage: 100 MG, UNK
     Route: 042
  15. CYCLOPHOSPHAMIDE. [Suspect]
     Active Substance: CYCLOPHOSPHAMIDE
     Indication: LYMPHOMA
  16. DOXORUBICIN [Suspect]
     Active Substance: DOXORUBICIN
     Indication: B-CELL LYMPHOMA
     Dosage: UNK
     Route: 065
  17. METHOTREXATE. [Suspect]
     Active Substance: METHOTREXATE
     Indication: B-CELL LYMPHOMA
     Dosage: 12 MG, UNK
     Route: 037
  18. CYCLOPHOSPHAMIDE. [Suspect]
     Active Substance: CYCLOPHOSPHAMIDE
     Dosage: AT 14 DAY INTERVALS
     Route: 065
  19. MABTHERA [Suspect]
     Active Substance: RITUXIMAB
     Indication: B-CELL LYMPHOMA
     Dosage: DOSAGE FORM: UNSPECIFIED
     Route: 037
  20. MABTHERA [Suspect]
     Active Substance: RITUXIMAB
     Indication: LYMPHOMA
     Dosage: DOSAGE FORM: UNSPECIFIED
     Route: 037
  21. PREDNISONE. [Suspect]
     Active Substance: PREDNISONE
     Indication: B-CELL LYMPHOMA
  22. ZEFFIX [Concomitant]
     Active Substance: LAMIVUDINE
     Route: 065

REACTIONS (19)
  - Extensor plantar response [Fatal]
  - Speech disorder [Fatal]
  - JC virus infection [Unknown]
  - Neurological decompensation [Fatal]
  - Dysstasia [Fatal]
  - White matter lesion [Fatal]
  - Asthenia [Fatal]
  - Dyskinesia [Fatal]
  - Respiratory tract infection [Unknown]
  - Product use in unapproved indication [Unknown]
  - Dysarthria [Fatal]
  - Motor dysfunction [Fatal]
  - Gait inability [Fatal]
  - Disease progression [Fatal]
  - Off label use [Unknown]
  - Progressive multifocal leukoencephalopathy [Fatal]
  - Diplopia [Fatal]
  - Intentional product use issue [Fatal]
  - Dysphagia [Fatal]
